FAERS Safety Report 11926816 (Version 1)
Quarter: 2016Q1

REPORT INFORMATION
  Report Type: Spontaneous
  Country: US (occurrence: US)
  Receive Date: 20160119
  Receipt Date: 20160119
  Transmission Date: 20160526
  Serious: Yes (Hospitalization)
  Sender: FDA-Public Use
  Company Number: US-AKORN PHARMACEUTICALS-2016AKN00016

PATIENT
  Age: 53 Year
  Sex: Male

DRUGS (5)
  1. RIFAMPIN. [Suspect]
     Active Substance: RIFAMPIN
     Indication: MENINGITIS BACTERIAL
     Dosage: UNK
     Dates: start: 2015, end: 2015
  2. INSULIN [Concomitant]
     Active Substance: INSULIN NOS
     Indication: BLOOD GLUCOSE INCREASED
     Dosage: UNK
     Dates: start: 2015
  3. INTRAVENOUS FLUIDS (BARIUM SULFATE) [Concomitant]
     Dosage: UNK
     Route: 042
     Dates: start: 2015
  4. VANCOMYCIN [Suspect]
     Active Substance: VANCOMYCIN
     Indication: MENINGITIS BACTERIAL
     Dosage: INTRA-THECAL
     Route: 037
     Dates: start: 2015
  5. VANCOMYCIN [Suspect]
     Active Substance: VANCOMYCIN
     Dosage: INTRAVENOUS
     Route: 042
     Dates: start: 2015

REACTIONS (3)
  - Blood bilirubin increased [Unknown]
  - Coagulopathy [Unknown]
  - Hypovolaemia [Unknown]
